FAERS Safety Report 9630633 (Version 1)
Quarter: 2013Q4

REPORT INFORMATION
  Report Type: Spontaneous
  Country: US (occurrence: None)
  Receive Date: 20131016
  Receipt Date: 20131016
  Transmission Date: 20140711
  Serious: Yes (Life-Threatening)
  Sender: FDA-Public Use
  Company Number: None

PATIENT
  Age: 66 Year
  Sex: Male

DRUGS (2)
  1. ANDROGEL [Suspect]
     Indication: BLOOD TESTOSTERONE DECREASED
     Dosage: 1-2 PUMPS, APPLIED TO A SURFACE, USUALLY THE SKIN
     Dates: start: 20130613, end: 20130812
  2. ANDROGEL [Suspect]
     Indication: HYPOPITUITARISM
     Dosage: 1-2 PUMPS, APPLIED TO A SURFACE, USUALLY THE SKIN
     Dates: start: 20130613, end: 20130812

REACTIONS (5)
  - Local swelling [None]
  - Fluid retention [None]
  - Palpitations [None]
  - Urinary retention [None]
  - Procedural complication [None]
